FAERS Safety Report 5141806-3 (Version None)
Quarter: 2006Q4

REPORT INFORMATION
  Report Type: 
  Country: None (occurrence: None)
  Receive Date: 20061027
  Receipt Date: 20061017
  Transmission Date: 20070319
  Serious: Yes (Other)
  Sender: FDA-Public Use
  Company Number: 2006127619

PATIENT
  Age: 44 Year
  Sex: Female

DRUGS (2)
  1. PREDNISOLONE [Suspect]
     Indication: ANAEMIA HAEMOLYTIC AUTOIMMUNE
     Dosage: (30 MG)
  2. SULFAMETHOXAZOLE W/TRIMETHOPIM (SULFAMETHOXAZOLE, TRIMETHOPRIM) [Concomitant]

REACTIONS (9)
  - ABSCESS [None]
  - CONFUSIONAL STATE [None]
  - DISORIENTATION [None]
  - FACIAL PALSY [None]
  - HEMIPARESIS [None]
  - NEUTROPHIL COUNT INCREASED [None]
  - NOCARDIOSIS [None]
  - PLEURAL EFFUSION [None]
  - WHITE BLOOD CELL COUNT INCREASED [None]
